FAERS Safety Report 24588796 (Version 2)
Quarter: 2024Q4

REPORT INFORMATION
  Report Type: Spontaneous
  Country: IL (occurrence: IL)
  Receive Date: 20241107
  Receipt Date: 20241114
  Transmission Date: 20250114
  Serious: No
  Sender: EMD SERONO INC
  Company Number: IL-Merck Healthcare KGaA-2024058389

PATIENT
  Sex: Female

DRUGS (2)
  1. MAVENCLAD [Suspect]
     Active Substance: CLADRIBINE
     Indication: Multiple sclerosis
     Dosage: FIRST COURSE THERAPY
     Dates: end: 202305
  2. MAVENCLAD [Suspect]
     Active Substance: CLADRIBINE
     Dosage: SECOND COURSE THERAPY

REACTIONS (1)
  - Lymphopenia [Not Recovered/Not Resolved]
